FAERS Safety Report 7368593-2 (Version None)
Quarter: 2011Q1

REPORT INFORMATION
  Report Type: 
  Country: None (occurrence: None)
  Receive Date: 20110314
  Receipt Date: 20110301
  Transmission Date: 20110831
  Serious: Yes (Hospitalization, Other)
  Sender: FDA-Public Use
  Company Number: FK201100337

PATIENT
  Age: 24 Year
  Sex: Female
  Weight: 61 kg

DRUGS (4)
  1. RINGERS ACETATE [Concomitant]
  2. OXYTOCIN [Suspect]
     Indication: UTERINE HYPOTONUS
     Dosage: 5 IU, INTRAVENOUS
     Route: 042
  3. METHYLERGOMETRINE MALEATE (METHYLERGOMETRINE MALEATE) [Suspect]
     Indication: UTERINE ATONY
     Dosage: 0.2 MG, INTRAVENOUS
     Route: 042
  4. ACETAZOLAMIDE [Concomitant]

REACTIONS (8)
  - DRUG EXPOSURE DURING PREGNANCY [None]
  - ARTHRALGIA [None]
  - MOBILITY DECREASED [None]
  - CONDITION AGGRAVATED [None]
  - DYSPHAGIA [None]
  - MUSCLE RIGIDITY [None]
  - PAIN IN EXTREMITY [None]
  - MYOTONIA [None]
